FAERS Safety Report 8506420-8 (Version None)
Quarter: 2012Q3

REPORT INFORMATION
  Report Type: 
  Country: None (occurrence: None)
  Receive Date: 20120712
  Receipt Date: 20120709
  Transmission Date: 20120928
  Serious: No
  Sender: FDA-Public Use
  Company Number: VE-PFIZER INC-2012158198

PATIENT
  Age: 51 Year

DRUGS (1)
  1. LYRICA [Suspect]
     Indication: CARPAL TUNNEL SYNDROME
     Dosage: 75 MG, 1X/DAY
     Route: 048
     Dates: start: 20120701

REACTIONS (1)
  - NO ADVERSE EVENT [None]
